FAERS Safety Report 6446723-4 (Version None)
Quarter: 2009Q4

REPORT INFORMATION
  Report Type: 
  Country: None (occurrence: None)
  Receive Date: 20091119
  Receipt Date: 20091118
  Transmission Date: 20100525
  Serious: Yes (Other)
  Sender: FDA-Public Use
  Company Number: US-B.I. PHARMACEUTICALS,INC./RIDGEFIELD-2009-BP-12699BP

PATIENT
  Sex: Male

DRUGS (5)
  1. MICARDIS [Suspect]
     Indication: HYPERTENSION
  2. VICODIN [Concomitant]
  3. NASONEX [Concomitant]
  4. ASTEPRO [Concomitant]
  5. ALLEGRA D 24 HOUR [Concomitant]

REACTIONS (1)
  - ANGIOEDEMA [None]
